FAERS Safety Report 6998033-4 (Version None)
Quarter: 2010Q3

REPORT INFORMATION
  Report Type: 
  Country: None (occurrence: None)
  Receive Date: 20100920
  Receipt Date: 20100222
  Transmission Date: 20110219
  Serious: Yes (Hospitalization)
  Sender: FDA-Public Use
  Company Number: US-ASTRAZENECA-2010SE07569

PATIENT
  Age: 29 Year
  Sex: Female
  Weight: 97.5 kg

DRUGS (6)
  1. SEROQUEL [Suspect]
     Indication: HALLUCINATION
     Route: 048
  2. SEROQUEL [Suspect]
     Route: 048
     Dates: start: 20091001
  3. SEROQUEL [Suspect]
     Route: 048
  4. PROZAC [Concomitant]
  5. ANTACID TAB [Concomitant]
  6. KLONOPIN [Concomitant]

REACTIONS (2)
  - SOMNOLENCE [None]
  - SUICIDE ATTEMPT [None]
